FAERS Safety Report 10365427 (Version 1)
Quarter: 2014Q3

REPORT INFORMATION
  Report Type: Spontaneous
  Country: JP (occurrence: JP)
  Receive Date: 20140806
  Receipt Date: 20140806
  Transmission Date: 20150326
  Serious: No
  Sender: FDA-Public Use
  Company Number: PHHY2012JP133916

PATIENT
  Age: 26 Year
  Sex: Female

DRUGS (5)
  1. ANTIHISTAMIN [Concomitant]
     Dates: start: 20110602
  2. BAYASPIRIN [Concomitant]
     Active Substance: ASPIRIN
     Dates: start: 20101220
  3. PREDNISOLONE. [Concomitant]
     Active Substance: PREDNISOLONE
     Dates: start: 20110706
  4. TASIGNA [Suspect]
     Active Substance: NILOTINIB
     Indication: CHRONIC MYELOID LEUKAEMIA
     Dosage: 300 MG, BID
     Dates: start: 20110602
  5. NSAID^S [Concomitant]
     Active Substance: UNSPECIFIED INGREDIENT
     Dates: start: 20110602

REACTIONS (4)
  - Myalgia [Recovering/Resolving]
  - Headache [Recovering/Resolving]
  - Hypoaesthesia [Recovering/Resolving]
  - Rash [Recovering/Resolving]

NARRATIVE: CASE EVENT DATE: 20110602
